FAERS Safety Report 8548130-7 (Version None)
Quarter: 2012Q3

REPORT INFORMATION
  Report Type: 
  Country: None (occurrence: None)
  Receive Date: 20120730
  Receipt Date: 20120719
  Transmission Date: 20120928
  Serious: Yes (Hospitalization)
  Sender: FDA-Public Use
  Company Number: US-BIOGENIDEC-2011BI031807

PATIENT
  Age: 48 Year
  Sex: Female

DRUGS (9)
  1. ADDERALL 5 [Concomitant]
  2. CELEXA [Concomitant]
  3. ATIVAN [Concomitant]
     Indication: ANXIETY
     Route: 048
  4. CYMBALTA [Concomitant]
  5. CIPROFLOXACIN HCL [Concomitant]
     Route: 048
  6. DILAUDID [Concomitant]
  7. ARICEPT [Concomitant]
  8. NORCO [Concomitant]
  9. TYSABRI [Suspect]
     Indication: MULTIPLE SCLEROSIS
     Route: 042
     Dates: start: 20090724, end: 20110617

REACTIONS (7)
  - IMPLANT SITE INFECTION [None]
  - BREAST CELLULITIS [None]
  - FUNGAL INFECTION [None]
  - PATIENT-DEVICE INCOMPATIBILITY [None]
  - FATIGUE [None]
  - DEPRESSION [None]
  - BREAST CANCER [None]
